FAERS Safety Report 10408570 (Version 1)
Quarter: 2014Q3

REPORT INFORMATION
  Report Type: Report from Study
  Country: AU (occurrence: AU)
  Receive Date: 20140826
  Receipt Date: 20140826
  Transmission Date: 20150326
  Serious: No
  Sender: FDA-Public Use
  Company Number: PHHY2014AU105548

PATIENT
  Age: 68 Year
  Sex: Female

DRUGS (3)
  1. SOMAC [Concomitant]
     Active Substance: PANTOPRAZOLE SODIUM
     Dosage: 1 DF, ONCE A DAY
  2. PANADOL [Concomitant]
     Active Substance: ACETAMINOPHEN
     Dosage: 2 TO 3 TIMES A DAY, 665 MG X2
  3. ACLASTA [Suspect]
     Active Substance: ZOLEDRONIC ACID
     Dosage: 5 MG/ 100 ML
     Route: 042

REACTIONS (1)
  - Sciatica [Unknown]

NARRATIVE: CASE EVENT DATE: 20050610
